FAERS Safety Report 21516265 (Version 2)
Quarter: 2022Q4

REPORT INFORMATION
  Report Type: Spontaneous
  Country: CH (occurrence: CH)
  Receive Date: 20221027
  Receipt Date: 20221108
  Transmission Date: 20230113
  Serious: Yes (Life-Threatening, Hospitalization)
  Sender: FDA-Public Use
  Company Number: CH-TEVA-2022-CH-2819381

PATIENT
  Age: 35 Year
  Sex: Female

DRUGS (18)
  1. LEVETIRACETAM [Suspect]
     Active Substance: LEVETIRACETAM
     Indication: Status epilepticus
     Dosage: 2 X 500 MG/D; DAY 8-9
     Route: 065
  2. LEVETIRACETAM [Suspect]
     Active Substance: LEVETIRACETAM
     Dosage: 2 X 1500 MG/D; DAY 9-17
     Route: 065
  3. LEVETIRACETAM [Suspect]
     Active Substance: LEVETIRACETAM
     Dosage: 2 X 2000 MG/D; DAY 17-ONGOING
     Route: 065
  4. ACETAMINOPHEN [Suspect]
     Active Substance: ACETAMINOPHEN
     Indication: Pyrexia
     Route: 065
  5. LACOSAMIDE [Suspect]
     Active Substance: LACOSAMIDE
     Indication: Status epilepticus
     Dosage: 2 X 100 MG/D; DAY 9-11
     Route: 065
  6. MIDAZOLAM [Suspect]
     Active Substance: MIDAZOLAM
     Indication: Status epilepticus
     Dosage: UP TO 40 MG/H; DAY 10-25
     Route: 042
  7. TOZINAMERAN [Suspect]
     Active Substance: TOZINAMERAN
     Indication: COVID-19 immunisation
     Dosage: FIRST AND SECOND DOSE
     Route: 065
  8. KETAMINE [Suspect]
     Active Substance: KETAMINE
     Indication: Status epilepticus
     Dosage: UP TO 300 MG/H; DAY 15-21
     Route: 042
  9. PHENOBARBITAL [Suspect]
     Active Substance: PHENOBARBITAL
     Indication: Status epilepticus
     Dosage: 2 X 150 MG/D; DAY 17-20
     Route: 065
  10. PHENOBARBITAL [Suspect]
     Active Substance: PHENOBARBITAL
     Dosage: 2 X 200 MG/D; DAY 20-ONGOING
     Route: 065
  11. PHENYTOIN [Concomitant]
     Active Substance: PHENYTOIN
     Indication: Status epilepticus
     Dosage: 3 X 250 MG/D; DAY 11-17
     Route: 065
  12. TIAPRIDE [Concomitant]
     Active Substance: TIAPRIDE
     Indication: Product used for unknown indication
     Dosage: 3 X 100 MG/D; DAY 24-30
     Route: 065
  13. DEXMEDETOMIDINE [Concomitant]
     Active Substance: DEXMEDETOMIDINE
     Indication: Product used for unknown indication
     Dosage: DAY 12-34 (RECURRENT TREATMENT)
     Route: 042
  14. LORAZEPAM [Concomitant]
     Active Substance: LORAZEPAM
     Indication: Product used for unknown indication
     Dosage: UP TO 4 X 2.5 MG/D; DAY 25-ONGOING
     Route: 065
  15. ACYCLOVIR [Concomitant]
     Active Substance: ACYCLOVIR
     Indication: Antiviral treatment
     Dosage: 3 X 10 MG/KG BODY WEIGHT/D IV; DAY 8-16, UNTIL NEGATIVE PCR OF VZV AND HSV
     Route: 042
  16. CEFTRIAXONE [Concomitant]
     Active Substance: CEFTRIAXONE
     Indication: Antibiotic therapy
     Dosage: 2 X 2000 MG/D; DAY 8-14
     Route: 065
  17. COTRIMOXAZOLE [Concomitant]
     Active Substance: SULFAMETHOXAZOLE\TRIMETHOPRIM
     Indication: Antibiotic therapy
     Dosage: 800/160MG; THREE TIMES A WEEK DURING HIGH DOSES STEROID TREATMENT
     Route: 065
  18. METHYLPREDNISOLONE [Concomitant]
     Active Substance: METHYLPREDNISOLONE
     Indication: Steroid therapy
     Dosage: DAY 10-14, FOLLOWED BY CAREFUL TAPERING
     Route: 042

REACTIONS (7)
  - Drug ineffective [Unknown]
  - Liver function test increased [Unknown]
  - Intentional product misuse [Unknown]
  - Status epilepticus [Recovered/Resolved]
  - Dyskinesia [Unknown]
  - Encephalitis autoimmune [Not Recovered/Not Resolved]
  - Limbic encephalitis [Not Recovered/Not Resolved]
